FAERS Safety Report 4994358-2 (Version None)
Quarter: 2006Q2

REPORT INFORMATION
  Report Type: 
  Country: None (occurrence: None)
  Receive Date: 20060503
  Receipt Date: 20060414
  Transmission Date: 20061013
  Serious: Yes (Hospitalization)
  Sender: FDA-Public Use
  Company Number: BE200601004466

PATIENT
  Age: 71 Year
  Sex: Male
  Weight: 90 kg

DRUGS (5)
  1. PEMETREXED [Suspect]
     Indication: MESOTHELIOMA
     Dosage: 1035 MG, INTRAVENOUS
     Route: 042
     Dates: start: 20050218, end: 20050503
  2. CISPLATIN [Suspect]
     Indication: MESOTHELIOMA
     Dosage: 155.25 MG, INTRAVENOUS
     Route: 042
     Dates: start: 20050218, end: 20050503
  3. FOLIC ACID [Concomitant]
  4. CYANOCOBALAMIN [Concomitant]
  5. MEDROL ACETATE [Concomitant]

REACTIONS (3)
  - CHOLECYSTITIS [None]
  - PANCYTOPENIA [None]
  - VENTRICULAR HYPERTROPHY [None]
